FAERS Safety Report 9837771 (Version 1)
Quarter: 2014Q1

REPORT INFORMATION
  Report Type: Spontaneous
  Country: IN (occurrence: IN)
  Receive Date: 20140123
  Receipt Date: 20140123
  Transmission Date: 20141002
  Serious: Yes (Hospitalization)
  Sender: FDA-Public Use
  Company Number: IN-B.I. PHARMACEUTICALS,INC./RIDGEFIELD-2014-BI-02712IG

PATIENT
  Age: 58 Year
  Sex: Male

DRUGS (3)
  1. TRAJENTA [Suspect]
  2. BETA BLOCKERS [Concomitant]
  3. CLOPEDOGRIL [Concomitant]

REACTIONS (2)
  - Syncope [Unknown]
  - Hypoglycaemia [Not Recovered/Not Resolved]
